FAERS Safety Report 9230634 (Version 1)
Quarter: 2013Q2

REPORT INFORMATION
  Report Type: Spontaneous
  Country: ES (occurrence: ES)
  Receive Date: 20130415
  Receipt Date: 20130415
  Transmission Date: 20140414
  Serious: Yes (Other)
  Sender: FDA-Public Use
  Company Number: ES-JNJFOC-20130402564

PATIENT
  Age: 18 Year
  Sex: Female

DRUGS (3)
  1. INFLIXIMAB, RECOMBINANT [Suspect]
     Indication: BEHCET^S SYNDROME
     Route: 042
  2. CYCLOPHOSPHAMIDE [Concomitant]
     Route: 065
  3. CORTICOSTEROIDS [Concomitant]
     Route: 065

REACTIONS (2)
  - Infusion related reaction [Unknown]
  - Off label use [Unknown]
